FAERS Safety Report 22646959 (Version 1)
Quarter: 2023Q2

REPORT INFORMATION
  Report Type: Spontaneous
  Country: US (occurrence: US)
  Receive Date: 20230627
  Receipt Date: 20230627
  Transmission Date: 20230722
  Serious: Yes (Death, Life-Threatening, Hospitalization, Other)
  Sender: FDA-Public Use
  Company Number: US-009507513-2306USA010164

PATIENT
  Sex: Female

DRUGS (5)
  1. KEYTRUDA [Suspect]
     Active Substance: PEMBROLIZUMAB
     Indication: Triple negative breast cancer
     Dosage: 200 MG EVERY 21 DAYS. SIX CYCLES
     Dates: start: 20220916, end: 202212
  2. KEYTRUDA [Suspect]
     Active Substance: PEMBROLIZUMAB
     Dosage: 200 MG EVERY 21 DAYS. MAINTEINANCE THERAPY
     Dates: end: 20230331
  3. LEVOTHYROXINE [Concomitant]
     Active Substance: LEVOTHYROXINE
  4. NALTREXONE [Concomitant]
     Active Substance: NALTREXONE
  5. VITAMINS [Concomitant]
     Active Substance: VITAMINS

REACTIONS (12)
  - Septic shock [Fatal]
  - Pneumonia bacterial [Fatal]
  - Mastectomy [Unknown]
  - Lymphadenectomy [Unknown]
  - Delirium [Unknown]
  - Hallucination [Unknown]
  - Hypoxia [Unknown]
  - Multiple organ dysfunction syndrome [Unknown]
  - Hepatitis [Unknown]
  - Pneumonitis [Unknown]
  - Asthenia [Unknown]
  - Decreased appetite [Unknown]

NARRATIVE: CASE EVENT DATE: 20230101
